FAERS Safety Report 7312753-3 (Version None)
Quarter: 2011Q1

REPORT INFORMATION
  Report Type: 
  Country: None (occurrence: None)
  Receive Date: 20110224
  Receipt Date: 20110216
  Transmission Date: 20110831
  Serious: Yes (Hospitalization)
  Sender: FDA-Public Use
  Company Number: US-GENENTECH-314019

PATIENT
  Sex: Female
  Weight: 61.6 kg

DRUGS (3)
  1. XELODA [Concomitant]
     Indication: THYMOMA MALIGNANT
     Dosage: UNK
  2. GEMZAR [Concomitant]
     Indication: THYMOMA MALIGNANT
  3. LUCENTIS [Suspect]
     Indication: MACULAR OEDEMA
     Dosage: 0.05 MG, PRN
     Dates: start: 20100519

REACTIONS (1)
  - NEUTROPENIA [None]
